FAERS Safety Report 11801734 (Version 1)
Quarter: 2015Q4

REPORT INFORMATION
  Report Type: Spontaneous
  Country: US (occurrence: US)
  Receive Date: 20151204
  Receipt Date: 20151204
  Transmission Date: 20160305
  Serious: No
  Sender: FDA-Public Use
  Company Number: US-JNJFOC-20151013374

PATIENT
  Sex: Male

DRUGS (1)
  1. HALOPERIDOL. [Suspect]
     Active Substance: HALOPERIDOL
     Indication: PRODUCT USED FOR UNKNOWN INDICATION
     Route: 030
     Dates: start: 201509, end: 201509

REACTIONS (14)
  - Patient restraint [Unknown]
  - Drug dose omission [Unknown]
  - Phantom shocks [Unknown]
  - Hallucination [Unknown]
  - Mental disorder [Not Recovered/Not Resolved]
  - Depression [Recovered/Resolved]
  - Neuralgia [Unknown]
  - Laziness [Not Recovered/Not Resolved]
  - Feeling abnormal [Unknown]
  - Stress [Not Recovered/Not Resolved]
  - Fibromyalgia [Unknown]
  - Agitation [Unknown]
  - Feeling abnormal [Unknown]
  - Pain [Unknown]

NARRATIVE: CASE EVENT DATE: 2015
